FAERS Safety Report 4306510-X (Version None)
Quarter: 2004Q1

REPORT INFORMATION
  Report Type: 
  Country: None (occurrence: None)
  Receive Date: 20040225
  Receipt Date: 20030813
  Transmission Date: 20041129
  Serious: No
  Sender: FDA-Public Use
  Company Number: US-BRISTOL-MYERS SQUIBB COMPANY-12367272

PATIENT
  Age: 68 Year
  Sex: Female
  Weight: 91 kg

DRUGS (2)
  1. EXCEDRIN ES TABS [Suspect]
     Indication: PYREXIA
     Dates: start: 19920101
  2. EXCEDRIN ES TABS [Suspect]
     Indication: HEADACHE
     Dates: start: 19920101

REACTIONS (3)
  - ASTHENIA [None]
  - DRUG INEFFECTIVE [None]
  - MEDICATION ERROR [None]
